FAERS Safety Report 23743124 (Version 1)
Quarter: 2024Q2

REPORT INFORMATION
  Report Type: Report from Study
  Country: US (occurrence: US)
  Receive Date: 20240415
  Receipt Date: 20240415
  Transmission Date: 20240716
  Serious: Yes (Other)
  Sender: FDA-Public Use
  Company Number: US-CELGENE-USA-20210204974

PATIENT
  Sex: Female

DRUGS (5)
  1. ABRAXANE [Suspect]
     Active Substance: PACLITAXEL
     Indication: Triple negative breast cancer
     Dosage: 100 MILLIGRAM/SQ. METER
  2. DURVALUMAB [Concomitant]
     Active Substance: DURVALUMAB
     Indication: Triple negative breast cancer
     Dosage: 4 CYCLES
  3. DURVALUMAB [Concomitant]
     Active Substance: DURVALUMAB
     Dosage: 10 MILLIGRAM/KILOGRAM
  4. DOXORUBICIN [Concomitant]
     Active Substance: DOXORUBICIN
     Indication: Triple negative breast cancer
     Dosage: 4 CYCLES
  5. CYCLOPHOSPHAMIDE [Concomitant]
     Active Substance: CYCLOPHOSPHAMIDE
     Indication: Triple negative breast cancer
     Dosage: 4 CYCLES

REACTIONS (2)
  - Neuropathy peripheral [Unknown]
  - Off label use [Unknown]
